FAERS Safety Report 18408128 (Version 3)
Quarter: 2020Q4

REPORT INFORMATION
  Report Type: Spontaneous
  Country: JP (occurrence: JP)
  Receive Date: 20201020
  Receipt Date: 20201217
  Transmission Date: 20210114
  Serious: Yes (Other)
  Sender: FDA-Public Use
  Company Number: JP-ABBVIE-19K-087-3212649-00

PATIENT
  Sex: Female
  Weight: 55 kg

DRUGS (7)
  1. RITODRINE HYDROCHLORIDE [Concomitant]
     Active Substance: RITODRINE HYDROCHLORIDE
     Indication: ABDOMINAL DISCOMFORT
     Route: 048
     Dates: start: 20200329, end: 20200403
  2. SULTAMICILLIN TOSILATE HYDRATE [Concomitant]
     Active Substance: SULTAMICILLIN TOSYLATE DIHYDRATE
     Indication: STREPTOCOCCAL INFECTION
     Dates: start: 20200803, end: 20200807
  3. RITODRINE HYDROCHLORIDE [Concomitant]
     Active Substance: RITODRINE HYDROCHLORIDE
     Dosage: ONLY ONCE
     Route: 042
     Dates: start: 20200329, end: 20200329
  4. FERRIC OXIDE, SACCHARATED [Concomitant]
     Active Substance: IRON SUCROSE
     Indication: HAEMOGLOBIN
     Route: 042
     Dates: start: 20200615, end: 20200803
  5. MAVIRET [Suspect]
     Active Substance: GLECAPREVIR\PIBRENTASVIR
     Indication: HEPATITIS C
     Route: 048
     Dates: start: 20191206, end: 20191225
  6. SODIUM FERROUS CITRATE [Concomitant]
     Active Substance: SODIUM FERROUS CITRATE
     Indication: HAEMOGLOBIN
     Route: 048
     Dates: start: 20200615, end: 20200727
  7. MECOBALAMIN [Concomitant]
     Active Substance: METHYLCOBALAMIN
     Indication: HAEMOGLOBIN
     Route: 048
     Dates: start: 20200615, end: 20200727

REACTIONS (5)
  - Abortion threatened [Recovering/Resolving]
  - Live birth [Unknown]
  - Haemoglobin decreased [Unknown]
  - Beta haemolytic streptococcal infection [Unknown]
  - Maternal exposure during pregnancy [Unknown]
